FAERS Safety Report 6830627-9 (Version None)
Quarter: 2010Q3

REPORT INFORMATION
  Report Type: 
  Country: None (occurrence: None)
  Receive Date: 20100709
  Receipt Date: 20100709
  Transmission Date: 20110219
  Serious: Yes (Hospitalization)
  Sender: FDA-Public Use
  Company Number: None

PATIENT
  Age: 58 Year
  Sex: Female
  Weight: 108 kg

DRUGS (1)
  1. HERCEPTIN [Suspect]
     Dosage: 612 MG / 661 MG Q 3 WKS. IV
     Route: 042
     Dates: start: 20100213, end: 20100616

REACTIONS (1)
  - GRAND MAL CONVULSION [None]
